FAERS Safety Report 18992097 (Version 1)
Quarter: 2021Q1

REPORT INFORMATION
  Report Type: Spontaneous
  Country: US (occurrence: US)
  Receive Date: 20210310
  Receipt Date: 20210310
  Transmission Date: 20210420
  Serious: Yes (Hospitalization)
  Sender: FDA-Public Use
  Company Number: None

PATIENT
  Age: 82 Year
  Sex: Male

DRUGS (2)
  1. CARBOPLATIN (CARBOPLATIN 10MG/ML INJ, SOLN) [Suspect]
     Active Substance: CARBOPLATIN
     Indication: BLADDER CANCER
     Route: 042
     Dates: start: 20210211, end: 20210211
  2. GEMCITABINE (GEMCITABINE HCL 1GM/VIL INJ) [Suspect]
     Active Substance: GEMCITABINE HYDROCHLORIDE
     Indication: BLADDER CANCER
     Route: 042
     Dates: start: 20210211, end: 20210218

REACTIONS (6)
  - Neutropenia [None]
  - Anaemia [None]
  - Duodenitis [None]
  - Melaena [None]
  - Oesophageal candidiasis [None]
  - Myelosuppression [None]

NARRATIVE: CASE EVENT DATE: 20210223
